FAERS Safety Report 7676909-2 (Version None)
Quarter: 2011Q3

REPORT INFORMATION
  Report Type: 
  Country: None (occurrence: None)
  Receive Date: 20110811
  Receipt Date: 20110808
  Transmission Date: 20111222
  Serious: Yes (Death)
  Sender: FDA-Public Use
  Company Number: PHHY2011EC71569

PATIENT
  Sex: Female

DRUGS (2)
  1. DIOVAN [Concomitant]
     Indication: HYPERTENSION
     Dosage: UNK UKN, UNK
  2. GENTEAL [Suspect]
     Dosage: UNK
     Route: 061
     Dates: start: 20101001

REACTIONS (1)
  - BRONCHOPNEUMONIA [None]
